FAERS Safety Report 4927962-8 (Version None)
Quarter: 2006Q1

REPORT INFORMATION
  Report Type: 
  Country: None (occurrence: None)
  Receive Date: 20060223
  Receipt Date: 20060210
  Transmission Date: 20060701
  Serious: Yes (Other)
  Sender: FDA-Public Use
  Company Number: 2006021466

PATIENT
  Age: 71 Year
  Sex: Female

DRUGS (3)
  1. SILDENAFIL CITRATE [Suspect]
     Indication: PULMONARY HYPERTENSION
     Dosage: 75 MG (25 MG, 3 IN 1 D), ORAL
     Route: 048
     Dates: start: 20051215
  2. CO-AMILOFRUSE                 (AMILORIDE HYDROCHLORIDE, FUROSEMIDE) [Concomitant]
  3. FERROUS SULPHATE          (FERROUS SULFATE) [Concomitant]

REACTIONS (1)
  - ATRIAL FIBRILLATION [None]
